FAERS Safety Report 7455883-8 (Version None)
Quarter: 2011Q2

REPORT INFORMATION
  Report Type: 
  Country: None (occurrence: None)
  Receive Date: 20110503
  Receipt Date: 20110425
  Transmission Date: 20111010
  Serious: Yes (Hospitalization)
  Sender: FDA-Public Use
  Company Number: A0925208A

PATIENT
  Age: 73 Year
  Sex: Female
  Weight: 68.3 kg

DRUGS (7)
  1. ALOE VERA [Concomitant]
  2. CALCIUM [Concomitant]
     Dosage: 1200MG PER DAY
  3. ZOCOR [Concomitant]
     Dosage: 10MG PER DAY
  4. ZOFRAN [Concomitant]
  5. TRASTUZUMAB [Suspect]
     Dosage: 2MGK WEEKLY
     Route: 042
     Dates: start: 20100301
  6. VITAMIN D [Concomitant]
  7. LAPATINIB [Suspect]
     Dosage: 1000MG PER DAY
     Route: 048
     Dates: start: 20110420

REACTIONS (4)
  - DEHYDRATION [None]
  - DIARRHOEA [None]
  - VOMITING [None]
  - NAUSEA [None]
